FAERS Safety Report 7553746-0 (Version None)
Quarter: 2011Q2

REPORT INFORMATION
  Report Type: 
  Country: None (occurrence: None)
  Receive Date: 20110614
  Receipt Date: 20110614
  Transmission Date: 20111010
  Serious: Yes (Other)
  Sender: FDA-Public Use
  Company Number: None

PATIENT
  Age: 47 Year
  Sex: Female
  Weight: 77.1115 kg

DRUGS (1)
  1. SINGULAIR [Suspect]
     Indication: MULTIPLE ALLERGIES
     Dosage: 10 MG 1 PO
     Route: 048
     Dates: start: 20110606, end: 20110611

REACTIONS (7)
  - GAIT DISTURBANCE [None]
  - DYSSTASIA [None]
  - PAIN [None]
  - PARAESTHESIA [None]
  - ABASIA [None]
  - MOVEMENT DISORDER [None]
  - DEPRESSION [None]
